FAERS Safety Report 8608664-3 (Version None)
Quarter: 2012Q3

REPORT INFORMATION
  Report Type: 
  Country: None (occurrence: None)
  Receive Date: 20120821
  Receipt Date: 20120810
  Transmission Date: 20120928
  Serious: Yes (Other)
  Sender: FDA-Public Use
  Company Number: GB-TEVA-353179ISR

PATIENT
  Age: 68 Year
  Sex: Female
  Weight: 55 kg

DRUGS (4)
  1. PARAFFIN LIGHT LIQUID [Concomitant]
     Dosage: 20 ML IN BATH OR ONTO WET SKIN.
  2. QUININE SULFATE [Concomitant]
     Indication: MUSCLE SPASMS
     Dosage: AT NIGHT
     Route: 048
  3. MIRTAZAPINE [Suspect]
     Indication: ANXIETY
     Route: 048
     Dates: end: 20120703
  4. DOUBLEBASE [Concomitant]
     Dosage: 3-4 TIMES A DAY

REACTIONS (2)
  - CHROMATURIA [None]
  - FAECES DISCOLOURED [None]
